FAERS Safety Report 5701115-8 (Version None)
Quarter: 2008Q2

REPORT INFORMATION
  Report Type: 
  Country: None (occurrence: None)
  Receive Date: 20080410
  Receipt Date: 20080403
  Transmission Date: 20081010
  Serious: Yes (Other)
  Sender: FDA-Public Use
  Company Number: BR-PFIZER INC-2008000059

PATIENT
  Sex: Female
  Weight: 60 kg

DRUGS (1)
  1. CELEBRA [Suspect]
     Indication: BACK DISORDER
     Route: 048
     Dates: start: 20071101, end: 20071201

REACTIONS (5)
  - ABDOMINAL PAIN UPPER [None]
  - DEHYDRATION [None]
  - DYSPNOEA [None]
  - OESOPHAGITIS [None]
  - WEIGHT DECREASED [None]
